FAERS Safety Report 15215534 (Version 1)
Quarter: 2018Q3

REPORT INFORMATION
  Report Type: Spontaneous
  Country: US (occurrence: US)
  Receive Date: 20180730
  Receipt Date: 20180730
  Transmission Date: 20181010
  Serious: No
  Sender: FDA-Public Use
  Company Number: US-ARALEZ PHARMACEUTICALS R+D INC.-2018-ARA-001889

PATIENT
  Sex: Female
  Weight: 72.56 kg

DRUGS (9)
  1. CALCIUM [Concomitant]
     Active Substance: CALCIUM
  2. TOPROL XL [Suspect]
     Active Substance: METOPROLOL SUCCINATE
     Indication: MITRAL VALVE PROLAPSE
     Dosage: 50 MG, QD
     Route: 065
  3. TOPROL XL [Suspect]
     Active Substance: METOPROLOL SUCCINATE
     Indication: HEART RATE IRREGULAR
  4. ATORVASTATIN [Concomitant]
     Active Substance: ATORVASTATIN
  5. METOPROLOL SUCCINATE. [Suspect]
     Active Substance: METOPROLOL SUCCINATE
     Indication: PRODUCT USED FOR UNKNOWN INDICATION
     Dosage: 50 MG, QD
     Route: 065
  6. HYDROCHLOROTHIAZIDE. [Concomitant]
     Active Substance: HYDROCHLOROTHIAZIDE
  7. LISINOPRIL. [Concomitant]
     Active Substance: LISINOPRIL
  8. VITAMIN D                          /00107901/ [Concomitant]
     Active Substance: ERGOCALCIFEROL
  9. TOPROL XL [Suspect]
     Active Substance: METOPROLOL SUCCINATE
     Indication: HEART RATE INCREASED

REACTIONS (3)
  - Off label use [Unknown]
  - Tachycardia [Unknown]
  - Drug ineffective for unapproved indication [Unknown]
